FAERS Safety Report 7527626-0 (Version None)
Quarter: 2011Q2

REPORT INFORMATION
  Report Type: 
  Country: None (occurrence: None)
  Receive Date: 20110527
  Receipt Date: 20110518
  Transmission Date: 20111010
  Serious: Yes (Hospitalization, Other)
  Sender: FDA-Public Use
  Company Number: DEP_00491_2011

PATIENT
  Age: 80 Year
  Sex: Female

DRUGS (2)
  1. CIPROFLOXACIN [Suspect]
     Indication: ANTIBIOTIC PROPHYLAXIS
     Dosage: (500 MG INTRAVENOUS (NOT OTHERWISE SPECIFED))
     Route: 042
  2. THYROXIN [Concomitant]

REACTIONS (12)
  - ARTERIOSPASM CORONARY [None]
  - BLOOD IMMUNOGLOBULIN E INCREASED [None]
  - KOUNIS SYNDROME [None]
  - PRURITUS GENERALISED [None]
  - BLOOD PRESSURE DECREASED [None]
  - RASH GENERALISED [None]
  - ATRIOVENTRICULAR BLOCK SECOND DEGREE [None]
  - CHEST DISCOMFORT [None]
  - MYOCARDIAL ISCHAEMIA [None]
  - HYPERHIDROSIS [None]
  - DRUG HYPERSENSITIVITY [None]
  - RASH ERYTHEMATOUS [None]
